FAERS Safety Report 10587525 (Version 1)
Quarter: 2014Q4

REPORT INFORMATION
  Report Type: Spontaneous
  Country: US (occurrence: US)
  Receive Date: 20141117
  Receipt Date: 20141117
  Transmission Date: 20150529
  Serious: No
  Sender: FDA-Public Use
  Company Number: US-BAYER-2014-166692

PATIENT
  Age: 7 Month
  Sex: Female

DRUGS (1)
  1. GADAVIST [Suspect]
     Active Substance: GADOBUTROL
     Indication: NUCLEAR MAGNETIC RESONANCE IMAGING BREAST
     Dosage: 10 ML, ONCE
     Dates: start: 20141105, end: 20141105

REACTIONS (3)
  - Pruritus [None]
  - Product use issue [None]
  - Urticaria [None]

NARRATIVE: CASE EVENT DATE: 20141105
